FAERS Safety Report 18901107 (Version 1)
Quarter: 2021Q1

REPORT INFORMATION
  Report Type: Spontaneous
  Country: DE (occurrence: DE)
  Receive Date: 20210216
  Receipt Date: 20210216
  Transmission Date: 20210420
  Serious: Yes (Hospitalization)
  Sender: FDA-Public Use
  Company Number: NVSC2021DE031195

PATIENT
  Age: 17 Year
  Sex: Female
  Weight: 51 kg

DRUGS (2)
  1. PENICILLIN V POTASSIUM. [Suspect]
     Active Substance: PENICILLIN V POTASSIUM
     Indication: TONSILLITIS
     Dosage: UNK
     Route: 048
     Dates: start: 20200226, end: 20200227
  2. EFEROX [Concomitant]
     Active Substance: LEVOTHYROXINE SODIUM
     Indication: HYPOTHYROIDISM
     Dosage: 62.5 UG, QD
     Route: 065

REACTIONS (1)
  - Product administration error [Recovered/Resolved]

NARRATIVE: CASE EVENT DATE: 20200227
